FAERS Safety Report 19683444 (Version 1)
Quarter: 2021Q3

REPORT INFORMATION
  Report Type: Spontaneous
  Country: US (occurrence: US)
  Receive Date: 20210810
  Receipt Date: 20210810
  Transmission Date: 20211014
  Serious: No
  Sender: FDA-Public Use
  Company Number: US-HORIZON THERAPEUTICS-HZN-2021-002708

PATIENT
  Age: 64 Year
  Sex: Female

DRUGS (1)
  1. TEPEZZA [Suspect]
     Active Substance: TEPROTUMUMAB-TRBW
     Indication: ENDOCRINE OPHTHALMOPATHY
     Dosage: 540 MG  IV ONCE FOR INITIAL DOSE OVER 90 MINUTES.
     Route: 042
     Dates: start: 20210508

REACTIONS (1)
  - Diarrhoea [Unknown]
